FAERS Safety Report 6538136-1 (Version None)
Quarter: 2010Q1

REPORT INFORMATION
  Report Type: 
  Country: None (occurrence: None)
  Receive Date: 20100114
  Receipt Date: 20091014
  Transmission Date: 20100710
  Serious: Yes (Other)
  Sender: FDA-Public Use
  Company Number: CHPA2009US20438

PATIENT
  Age: 13 Month
  Sex: Male

DRUGS (1)
  1. EXCEDRIN MIGRAINE (NCH) [Suspect]
     Dosage: UNK, UNK
     Route: 048
     Dates: start: 20090911, end: 20090911

REACTIONS (4)
  - ABDOMINAL PAIN UPPER [None]
  - ACCIDENTAL DRUG INTAKE BY CHILD [None]
  - ACCIDENTAL OVERDOSE [None]
  - VOMITING [None]
